FAERS Safety Report 9333925 (Version 1)
Quarter: 2013Q2

REPORT INFORMATION
  Report Type: Spontaneous
  Country: US (occurrence: US)
  Receive Date: 20130606
  Receipt Date: 20130606
  Transmission Date: 20140414
  Serious: No
  Sender: FDA-Public Use
  Company Number: US-AMGEN-USASP2013000623

PATIENT
  Age: 53 Year
  Sex: Female

DRUGS (3)
  1. PROLIA [Suspect]
     Indication: OSTEOPENIA
     Dosage: 60 MG, Q6MO
     Route: 058
     Dates: start: 20120806, end: 20120812
  2. ESTRADIOL [Concomitant]
     Indication: HOT FLUSH
     Dosage: UNK MG, AS NECESSARY
     Route: 048
     Dates: start: 20120305
  3. ESTRING [Concomitant]
     Indication: VULVOVAGINAL DRYNESS
     Dosage: UNK MUG, UNK
     Route: 067
     Dates: start: 20120305

REACTIONS (3)
  - Pruritus [Recovered/Resolved]
  - Erythema [Recovered/Resolved]
  - Rash [Unknown]
